FAERS Safety Report 17352835 (Version 1)
Quarter: 2020Q1

REPORT INFORMATION
  Report Type: Other
  Country: CA (occurrence: CA)
  Receive Date: 20200131
  Receipt Date: 20200131
  Transmission Date: 20200409
  Serious: Yes (Disabling)
  Sender: FDA-Public Use
  Company Number: CA-LUPIN PHARMACEUTICALS INC.-2020-00414

PATIENT
  Age: 36 Year
  Sex: Female
  Weight: 62 kg

DRUGS (2)
  1. NORETHINDRONE. [Suspect]
     Active Substance: NORETHINDRONE
     Indication: CONTRACEPTION
     Dosage: 0.35 MILLIGRAM, QD (1 EVERY 1 DAY)
     Route: 048
  2. CITALOPRAM [Concomitant]
     Active Substance: CITALOPRAM HYDROBROMIDE
     Indication: PRODUCT USED FOR UNKNOWN INDICATION
     Dosage: UNK
     Route: 065

REACTIONS (14)
  - Insomnia [Recovered/Resolved]
  - Tachycardia [Recovered/Resolved]
  - Acne [Recovered/Resolved]
  - Tachypnoea [Recovered/Resolved]
  - Feeling hot [Recovered/Resolved]
  - Panic attack [Recovered/Resolved]
  - Skin burning sensation [Recovered/Resolved]
  - Nausea [Recovered/Resolved]
  - Breast tenderness [Recovered/Resolved]
  - Hirsutism [Recovered/Resolved]
  - Breast swelling [Recovered/Resolved]
  - Choking sensation [Recovered/Resolved]
  - Pyrexia [Recovered/Resolved]
  - Presyncope [Recovered/Resolved]
